FAERS Safety Report 9380246 (Version 1)
Quarter: 2013Q3

REPORT INFORMATION
  Report Type: Spontaneous
  Country: US (occurrence: None)
  Receive Date: 20130701
  Receipt Date: 20130701
  Transmission Date: 20140515
  Serious: Yes (Hospitalization)
  Sender: FDA-Public Use
  Company Number: None

PATIENT
  Age: 71 Year
  Sex: Female
  Weight: 69.85 kg

DRUGS (1)
  1. METOPROLOL SUCC [Suspect]
     Dosage: 50 MG EVERY AM PO
     Route: 048
     Dates: start: 20130423, end: 20130606

REACTIONS (3)
  - Heart rate irregular [None]
  - Chest pain [None]
  - Product substitution issue [None]
